FAERS Safety Report 4629249-X (Version None)
Quarter: 2005Q2

REPORT INFORMATION
  Report Type: 
  Country: None (occurrence: None)
  Receive Date: 20050405
  Receipt Date: 20050310
  Transmission Date: 20051028
  Serious: Yes (Other)
  Sender: FDA-Public Use
  Company Number: 168S9303

PATIENT
  Age: 75 Year
  Sex: Male
  Weight: 77.1115 kg

DRUGS (1)
  1. ELDEPRYL [Suspect]
     Indication: PARKINSON'S DISEASE
     Dosage: 5 MG ORAL
     Route: 048
     Dates: start: 20040501, end: 20050301

REACTIONS (1)
  - PANCYTOPENIA [None]
